FAERS Safety Report 9366731 (Version 3)
Quarter: 2013Q3

REPORT INFORMATION
  Report Type: Report from Study
  Country: US (occurrence: US)
  Receive Date: 20130625
  Receipt Date: 20130829
  Transmission Date: 20140515
  Serious: Yes (Death, Hospitalization)
  Sender: FDA-Public Use
  Company Number: US-ACTELION-A-US2013-84581

PATIENT
  Age: 55 Year
  Sex: Female

DRUGS (4)
  1. VENTAVIS [Suspect]
     Indication: PULMONARY ARTERIAL HYPERTENSION
     Dosage: UNK, Q2HRS
     Route: 055
     Dates: start: 201301
  2. VENTAVIS [Suspect]
     Dosage: UNK
     Route: 055
  3. LETAIRIS [Concomitant]
  4. COUMADIN [Concomitant]

REACTIONS (6)
  - Death [Fatal]
  - Pulmonary oedema [Unknown]
  - Pericardial effusion [Unknown]
  - Fluid retention [Unknown]
  - Malaise [Unknown]
  - Weight increased [Unknown]
